FAERS Safety Report 9177765 (Version 1)
Quarter: 2012Q4

REPORT INFORMATION
  Report Type: 
  Country: US (occurrence: US)
  Receive Date: 20121010
  Receipt Date: 20121010
  Transmission Date: 20130627
  Serious: Yes (Hospitalization)
  Sender: FDA-Public Use
  Company Number: US-BRACCO-008700

PATIENT
  Age: 70 Year
  Sex: Female

DRUGS (15)
  1. HYDROCHLOROTHIAZIDE [Concomitant]
  2. ASPIRIN [Concomitant]
  3. ESOMEPRAZOLE [Concomitant]
  4. FUROSEMIDE [Concomitant]
  5. GLIMEPIRIDE [Concomitant]
  6. METFORMIN [Concomitant]
  7. CLOPIDOGREL [Concomitant]
  8. MULTIVITAMIN [Concomitant]
  9. METOPROLOL [Concomitant]
  10. LISINOPRIL [Concomitant]
  11. ISOVUE 370 [Suspect]
     Indication: PULMONARY EMBOLISM
     Route: 042
     Dates: start: 20121008, end: 20121008
  12. ISOVUE 370 [Suspect]
     Indication: FIBRIN D DIMER INCREASED
     Route: 042
     Dates: start: 20121008, end: 20121008
  13. ISOVUE 370 [Suspect]
     Indication: COMPUTERISED TOMOGRAM
     Route: 042
     Dates: start: 20121008, end: 20121008
  14. ISOVUE 370 [Suspect]
     Indication: DYSPNOEA
     Route: 042
     Dates: start: 20121008, end: 20121008
  15. PRAVASTATIN [Concomitant]

REACTIONS (1)
  - Acute respiratory failure [Unknown]
